FAERS Safety Report 8911720 (Version 1)
Quarter: 2012Q4

REPORT INFORMATION
  Report Type: 
  Country: IT (occurrence: IT)
  Receive Date: 20121116
  Receipt Date: 20121116
  Transmission Date: 20130627
  Serious: Yes (Other)
  Sender: FDA-Public Use
  Company Number: IT-PFIZER INC-2012285569

PATIENT
  Age: 74 Year
  Sex: Female

DRUGS (7)
  1. CORDARONE [Suspect]
     Indication: CARDIOMYOPATHY
     Dosage: 200 mg, 1x/day
     Route: 048
     Dates: start: 20110901
  2. BISOPROLOL [Concomitant]
     Dosage: UNK
  3. METFORMIN [Concomitant]
     Dosage: UNK
  4. LASIX [Concomitant]
     Dosage: UNK
  5. AMLODIPINE [Concomitant]
     Dosage: UNK
  6. ANTRA [Concomitant]
     Dosage: UNK
  7. CARDIOASPIRIN [Concomitant]
     Dosage: UNK

REACTIONS (2)
  - Cystoid macular oedema [Unknown]
  - Keratitis [Unknown]
